FAERS Safety Report 11072032 (Version 1)
Quarter: 2015Q2

REPORT INFORMATION
  Report Type: Spontaneous
  Country: US (occurrence: US)
  Receive Date: 20150428
  Receipt Date: 20150428
  Transmission Date: 20150821
  Serious: No
  Sender: FDA-Public Use
  Company Number: US-BAUSCH-BL-2014-004313

PATIENT
  Age: 33 Year
  Sex: Male
  Weight: 77.18 kg

DRUGS (3)
  1. ERYTHROMYCIN OPHTHALMIC OINTMENT USP 0.5% [Suspect]
     Active Substance: ERYTHROMYCIN
     Indication: BACTERIAL INFECTION
     Route: 047
  2. LOTEMAX [Suspect]
     Active Substance: LOTEPREDNOL ETABONATE
     Indication: BACTERIAL INFECTION
     Route: 047
     Dates: start: 2014
  3. PATADAY [Suspect]
     Active Substance: OLOPATADINE HYDROCHLORIDE
     Indication: BACTERIAL INFECTION
     Route: 047

REACTIONS (4)
  - Ear discomfort [Not Recovered/Not Resolved]
  - Off label use [Unknown]
  - Hearing impaired [Not Recovered/Not Resolved]
  - Tinnitus [Not Recovered/Not Resolved]

NARRATIVE: CASE EVENT DATE: 2014
